FAERS Safety Report 8443432-7 (Version None)
Quarter: 2012Q2

REPORT INFORMATION
  Report Type: 
  Country: None (occurrence: None)
  Receive Date: 20120618
  Receipt Date: 20120605
  Transmission Date: 20120825
  Serious: Yes (Other)
  Sender: FDA-Public Use
  Company Number: US-CELGENEUS-163-21880-12061039

PATIENT
  Sex: Male
  Weight: 92.8 kg

DRUGS (15)
  1. REVLIMID [Suspect]
     Indication: MULTIPLE MYELOMA
     Route: 048
     Dates: start: 20100801, end: 20101001
  2. REVLIMID [Suspect]
     Route: 048
     Dates: start: 20101021, end: 20110501
  3. OMEPRAZOLE [Concomitant]
     Dosage: 20 MILLIGRAM
     Route: 065
  4. VITAMIN B COMPLEX CAP [Concomitant]
     Route: 065
  5. VITAMIN D [Concomitant]
     Dosage: 5000 UNITS
     Route: 065
  6. ZOMETA [Concomitant]
     Dosage: 4 MILLIGRAM
     Route: 041
  7. REVLIMID [Suspect]
     Route: 048
     Dates: start: 20110501, end: 20111001
  8. REVLIMID [Suspect]
     Dosage: 10 MILLIGRAM
     Route: 048
     Dates: start: 20111001, end: 20120501
  9. REVLIMID [Suspect]
     Route: 048
     Dates: start: 20120601
  10. CALCET [Concomitant]
     Dosage: 325 MILLIGRAM
     Route: 048
  11. ASPIRIN [Concomitant]
     Dosage: 325 MILLIGRAM
     Route: 065
  12. LORAZEPAM [Concomitant]
     Dosage: .5 MILLIGRAM
     Route: 065
  13. FLECAINIDE ACETATE [Concomitant]
     Dosage: 50 MILLIGRAM
     Route: 065
  14. LOPRESSOR [Concomitant]
     Dosage: 50 MILLIGRAM
     Route: 065
  15. MIRTAZAPINE [Concomitant]
     Dosage: 30 MILLIGRAM
     Route: 065

REACTIONS (3)
  - DIARRHOEA [None]
  - SQUAMOUS CELL CARCINOMA OF SKIN [None]
  - PANCYTOPENIA [None]
